FAERS Safety Report 8858759 (Version 1)
Quarter: 2012Q4

REPORT INFORMATION
  Report Type: Spontaneous
  Country: US (occurrence: None)
  Receive Date: 20121023
  Receipt Date: 20121023
  Transmission Date: 20130627
  Serious: No
  Sender: FDA-Public Use
  Company Number: None

PATIENT
  Age: 66 Year
  Sex: Male
  Weight: 78.6 kg

DRUGS (2)
  1. BLEOMYCIN [Suspect]
     Dosage: 19 units ONCE IV
     Route: 042
     Dates: start: 20120928, end: 20120928
  2. VINBLASTINE [Suspect]
     Dosage: 11 mg ONCE IV
     Route: 042
     Dates: start: 20120928, end: 20120928

REACTIONS (8)
  - Photosensitivity reaction [None]
  - Erythema [None]
  - Pruritus [None]
  - Skin exfoliation [None]
  - Rash [None]
  - Urticaria [None]
  - Skin induration [None]
  - Blister [None]
